FAERS Safety Report 8988908 (Version 1)
Quarter: 2012Q4

REPORT INFORMATION
  Report Type: Spontaneous
  Country: US (occurrence: None)
  Receive Date: 20121220
  Receipt Date: 20121220
  Transmission Date: 20130627
  Serious: Yes (Death, Hospitalization, Other)
  Sender: FDA-Public Use
  Company Number: IMP_06109_2012

PATIENT
  Age: 38 Year
  Sex: Female

DRUGS (1)
  1. CHLOROQUINE [Suspect]
     Indication: CUTANEOUS LUPUS ERYTHEMATOSUS
     Route: 048

REACTIONS (12)
  - Atrioventricular block complete [None]
  - Cardiac failure congestive [None]
  - Congestive cardiomyopathy [None]
  - Cardiogenic shock [None]
  - Renal failure acute [None]
  - Cardio-respiratory arrest [None]
  - Toxicity to various agents [None]
  - Dizziness [None]
  - Syncope [None]
  - Transaminases increased [None]
  - Myopathy [None]
  - Blood creatine phosphokinase increased [None]
